FAERS Safety Report 20564966 (Version 1)
Quarter: 2022Q1

REPORT INFORMATION
  Report Type: Spontaneous
  Country: FR (occurrence: FR)
  Receive Date: 20220308
  Receipt Date: 20220308
  Transmission Date: 20220423
  Serious: Yes (Death, Other)
  Sender: FDA-Public Use
  Company Number: None

PATIENT
  Age: 69 Year
  Sex: Female
  Weight: 90 kg

DRUGS (5)
  1. LOVENOX [Suspect]
     Active Substance: ENOXAPARIN SODIUM
     Indication: Acute coronary syndrome
     Dosage: 0.7 ML, QD
     Route: 058
     Dates: start: 20220219, end: 20220219
  2. LOVENOX [Suspect]
     Active Substance: ENOXAPARIN SODIUM
     Dosage: 0.3 ML, QD
     Route: 042
     Dates: start: 20220219, end: 20220219
  3. PLAVIX [Suspect]
     Active Substance: CLOPIDOGREL BISULFATE
     Indication: Acute coronary syndrome
     Dosage: 300MG, QD
     Route: 048
     Dates: start: 20220219, end: 20220219
  4. ASPIRIN DL-LYSINE [Suspect]
     Active Substance: ASPIRIN DL-LYSINE
     Indication: Acute coronary syndrome
     Dosage: 250MG, QD
     Route: 042
     Dates: start: 20220219, end: 20220219
  5. METALYSE [Suspect]
     Active Substance: TENECTEPLASE
     Indication: Acute coronary syndrome
     Dosage: 9 ML, QD
     Route: 042
     Dates: start: 20220219, end: 20220219

REACTIONS (1)
  - Cerebral haematoma [Fatal]
